FAERS Safety Report 5460410-0 (Version None)
Quarter: 2007Q3

REPORT INFORMATION
  Report Type: 
  Country: None (occurrence: None)
  Receive Date: 20070919
  Receipt Date: 20070702
  Transmission Date: 20080115
  Serious: No
  Sender: FDA-Public Use
  Company Number: US-ASTRAZENECA-2007UW15967

PATIENT
  Age: 18020 Day
  Sex: Female
  Weight: 88.6 kg

DRUGS (1)
  1. SEROQUEL [Suspect]
     Indication: DEPRESSION
     Route: 048
     Dates: start: 20010101, end: 20060101

REACTIONS (5)
  - BLOOD TRIGLYCERIDES INCREASED [None]
  - BREAST COSMETIC SURGERY [None]
  - HIATUS HERNIA [None]
  - ILL-DEFINED DISORDER [None]
  - TYPE 2 DIABETES MELLITUS [None]
